FAERS Safety Report 5504887-0 (Version None)
Quarter: 2007Q4

REPORT INFORMATION
  Report Type: 
  Country: None (occurrence: None)
  Receive Date: 20071031
  Receipt Date: 20071024
  Transmission Date: 20080405
  Serious: Yes (Hospitalization)
  Sender: FDA-Public Use
  Company Number: 019979

PATIENT
  Age: 30 Year
  Sex: Male
  Weight: 76.6 kg

DRUGS (2)
  1. CLARAVIS [Suspect]
     Indication: HIDRADENITIS
     Dosage: 60 MG/DAY, ORAL; 40 MG,BID,ORAL
     Route: 048
     Dates: start: 20060920, end: 20070121
  2. CLARAVIS [Suspect]
     Indication: HIDRADENITIS
     Dosage: 60 MG/DAY, ORAL; 40 MG,BID,ORAL
     Route: 048
     Dates: start: 20070122

REACTIONS (2)
  - CONDITION AGGRAVATED [None]
  - HIDRADENITIS [None]
